FAERS Safety Report 8201568-X (Version None)
Quarter: 2012Q1

REPORT INFORMATION
  Report Type: 
  Country: None (occurrence: None)
  Receive Date: 20120307
  Receipt Date: 20120221
  Transmission Date: 20120608
  Serious: Yes (Other)
  Sender: FDA-Public Use
  Company Number: 2012MPI00037

PATIENT
  Age: 21 Year
  Sex: Male

DRUGS (4)
  1. TRIMETHOPRIM SULFAMETHOXAZOLE (SULFAMETHOXAZOLE, TREMETHOPRIM) [Concomitant]
  2. OMEPRAZOLE [Concomitant]
  3. BRENTUXIMAB VEDOTIN (BRENTUXIMAB VEDOTIN) INJECTION [Suspect]
     Indication: HODGKIN'S DISEASE REFRACTORY
     Dosage: 150 MG, Q21D, INRAVENOUS
     Route: 042
     Dates: start: 20111004, end: 20111115
  4. ACICLOVIR (ACICLOVIR SODIUM) [Concomitant]

REACTIONS (4)
  - IATROGENIC INJURY [None]
  - LUNG INFILTRATION [None]
  - DIFFUSE ALVEOLAR DAMAGE [None]
  - PULMONARY TOXICITY [None]
